FAERS Safety Report 10623624 (Version 1)
Quarter: 2014Q4

REPORT INFORMATION
  Report Type: Spontaneous
  Country: US (occurrence: US)
  Receive Date: 20141203
  Receipt Date: 20141203
  Transmission Date: 20150529
  Serious: Yes (Other)
  Sender: FDA-Public Use
  Company Number: US-ELI_LILLY_AND_COMPANY-US201411010575

PATIENT
  Age: 79 Year
  Sex: Female

DRUGS (1)
  1. HUMALOG [Suspect]
     Active Substance: INSULIN LISPRO
     Indication: TYPE 2 DIABETES MELLITUS
     Dosage: 8 U, BID
     Route: 065
     Dates: start: 201311

REACTIONS (4)
  - Asthenia [Unknown]
  - Blood glucose abnormal [Unknown]
  - Spinal fracture [Unknown]
  - Underdose [Unknown]

NARRATIVE: CASE EVENT DATE: 20141125
